FAERS Safety Report 4733701-6 (Version None)
Quarter: 2005Q3

REPORT INFORMATION
  Report Type: 
  Country: None (occurrence: None)
  Receive Date: 20050729
  Receipt Date: 20050418
  Transmission Date: 20060218
  Serious: No
  Sender: FDA-Public Use
  Company Number: MK200504-0169-1

PATIENT
  Age: 72 Year
  Sex: Female

DRUGS (2)
  1. NEUTROSPEC [Suspect]
     Indication: DIAGNOSTIC PROCEDURE
     Dosage: 20 MCI, ONCE
     Dates: start: 20050418, end: 20050418
  2. NEUTROSPEC [Suspect]
     Indication: INFECTION
     Dosage: 20 MCI, ONCE
     Dates: start: 20050418, end: 20050418

REACTIONS (3)
  - BONE PAIN [None]
  - DYSPNOEA [None]
  - HEADACHE [None]
